FAERS Safety Report 9908246 (Version 1)
Quarter: 2014Q1

REPORT INFORMATION
  Report Type: Spontaneous
  Country: US (occurrence: None)
  Receive Date: 20140212
  Receipt Date: 20140212
  Transmission Date: 20141002
  Serious: Yes (Other)
  Sender: FDA-Public Use
  Company Number: None

PATIENT
  Age: 64 Year
  Sex: Female
  Weight: 70.6 kg

DRUGS (1)
  1. PACLITAXEL [Suspect]
     Indication: NON-SMALL CELL LUNG CANCER
     Dosage: 90 MG IN D5W ML?INFUSE OVER 1 HR?INTRAVENOUS
     Route: 042
     Dates: start: 20140210, end: 20140210

REACTIONS (2)
  - Cough [None]
  - Throat irritation [None]
